FAERS Safety Report 4754150-0 (Version None)
Quarter: 2005Q3

REPORT INFORMATION
  Report Type: 
  Country: None (occurrence: None)
  Receive Date: 20050826
  Receipt Date: 19990615
  Transmission Date: 20060218
  Serious: Yes (Hospitalization)
  Sender: FDA-Public Use
  Company Number: JP-ABBOTT-05P-087-0306543-00

PATIENT
  Age: 3 Year
  Sex: Female

DRUGS (1)
  1. ERYTHROCIN [Suspect]
     Indication: INFECTION PROPHYLAXIS
     Route: 048
     Dates: start: 19981101, end: 19990609

REACTIONS (2)
  - ERYTHEMA MULTIFORME [None]
  - INTESTINAL MUCOSAL HYPERTROPHY [None]
